FAERS Safety Report 17061248 (Version 4)
Quarter: 2020Q1

REPORT INFORMATION
  Report Type: Spontaneous
  Country: US (occurrence: US)
  Receive Date: 20191121
  Receipt Date: 20200325
  Transmission Date: 20200409
  Serious: Yes (Other)
  Sender: FDA-Public Use
  Company Number: US-ARRAY-2019-06569

PATIENT

DRUGS (2)
  1. MEKTOVI [Suspect]
     Active Substance: BINIMETINIB
     Indication: MALIGNANT MELANOMA
     Dosage: 45 MG, BID
     Route: 048
     Dates: start: 201909
  2. BRAFTOVI [Suspect]
     Active Substance: ENCORAFENIB
     Indication: MALIGNANT MELANOMA
     Dosage: 450 MG, QD
     Route: 048
     Dates: start: 201909

REACTIONS (8)
  - Diabetes mellitus [Unknown]
  - Dyspepsia [Unknown]
  - Skin texture abnormal [Unknown]
  - Arthralgia [Unknown]
  - Blood cholesterol increased [Unknown]
  - Pollakiuria [Unknown]
  - Sluggishness [Unknown]
  - Taste disorder [Unknown]
